FAERS Safety Report 25962354 (Version 1)
Quarter: 2025Q4

REPORT INFORMATION
  Report Type: Spontaneous
  Country: EU (occurrence: EU)
  Receive Date: 20251027
  Receipt Date: 20251027
  Transmission Date: 20260117
  Serious: Yes (Other)
  Sender: MYLAN
  Company Number: None

PATIENT
  Age: 102 Year
  Sex: Female
  Weight: 40 kg

DRUGS (44)
  1. CANDESARTAN CILEXETIL\HYDROCHLOROTHIAZIDE [Suspect]
     Active Substance: CANDESARTAN CILEXETIL\HYDROCHLOROTHIAZIDE
     Indication: Product used for unknown indication
     Dosage: 1 DOSAGE FORM, TOTAL
     Dates: start: 20250826, end: 20250826
  2. CANDESARTAN CILEXETIL\HYDROCHLOROTHIAZIDE [Suspect]
     Active Substance: CANDESARTAN CILEXETIL\HYDROCHLOROTHIAZIDE
     Dosage: 1 DOSAGE FORM, TOTAL
     Route: 048
     Dates: start: 20250826, end: 20250826
  3. CANDESARTAN CILEXETIL\HYDROCHLOROTHIAZIDE [Suspect]
     Active Substance: CANDESARTAN CILEXETIL\HYDROCHLOROTHIAZIDE
     Dosage: 1 DOSAGE FORM, TOTAL
     Route: 048
     Dates: start: 20250826, end: 20250826
  4. CANDESARTAN CILEXETIL\HYDROCHLOROTHIAZIDE [Suspect]
     Active Substance: CANDESARTAN CILEXETIL\HYDROCHLOROTHIAZIDE
     Dosage: 1 DOSAGE FORM, TOTAL
     Dates: start: 20250826, end: 20250826
  5. FUROSEMIDE [4]
     Active Substance: FUROSEMIDE
     Indication: Product used for unknown indication
     Dosage: UNK
  6. FUROSEMIDE [4]
     Active Substance: FUROSEMIDE
     Dosage: UNK
     Route: 065
  7. FUROSEMIDE [4]
     Active Substance: FUROSEMIDE
     Dosage: UNK
     Route: 065
  8. FUROSEMIDE [4]
     Active Substance: FUROSEMIDE
     Dosage: UNK
  9. FOLIC ACID [4]
     Active Substance: FOLIC ACID
     Indication: Product used for unknown indication
     Dosage: UNK
  10. FOLIC ACID [4]
     Active Substance: FOLIC ACID
     Dosage: UNK
     Route: 065
  11. FOLIC ACID [4]
     Active Substance: FOLIC ACID
     Dosage: UNK
     Route: 065
  12. FOLIC ACID [4]
     Active Substance: FOLIC ACID
     Dosage: UNK
  13. FUROSEMIDE [Suspect]
     Active Substance: FUROSEMIDE
     Indication: Product used for unknown indication
     Dosage: 60 MILLIGRAM, TOTAL
     Dates: start: 20250826, end: 20250826
  14. FUROSEMIDE [Suspect]
     Active Substance: FUROSEMIDE
     Dosage: 60 MILLIGRAM, TOTAL
     Route: 048
     Dates: start: 20250826, end: 20250826
  15. FUROSEMIDE [Suspect]
     Active Substance: FUROSEMIDE
     Dosage: 60 MILLIGRAM, TOTAL
     Route: 048
     Dates: start: 20250826, end: 20250826
  16. FUROSEMIDE [Suspect]
     Active Substance: FUROSEMIDE
     Dosage: 60 MILLIGRAM, TOTAL
     Dates: start: 20250826, end: 20250826
  17. LEVOTHYROXINE [4]
     Active Substance: LEVOTHYROXINE
     Indication: Product used for unknown indication
     Dosage: UNK (SCORED TABLET)
  18. LEVOTHYROXINE [4]
     Active Substance: LEVOTHYROXINE
     Dosage: UNK (SCORED TABLET)
     Route: 065
  19. LEVOTHYROXINE [4]
     Active Substance: LEVOTHYROXINE
     Dosage: UNK (SCORED TABLET)
     Route: 065
  20. LEVOTHYROXINE [4]
     Active Substance: LEVOTHYROXINE
     Dosage: UNK (SCORED TABLET)
  21. LORMETAZEPAM [4]
     Active Substance: LORMETAZEPAM
     Indication: Product used for unknown indication
     Dosage: UNK (SCORED TABLET)
  22. LORMETAZEPAM [4]
     Active Substance: LORMETAZEPAM
     Dosage: UNK (SCORED TABLET)
     Route: 065
  23. LORMETAZEPAM [4]
     Active Substance: LORMETAZEPAM
     Dosage: UNK (SCORED TABLET)
     Route: 065
  24. LORMETAZEPAM [4]
     Active Substance: LORMETAZEPAM
     Dosage: UNK (SCORED TABLET)
  25. KARDEGIC [4]
     Active Substance: ASPIRIN DL-LYSINE
     Indication: Product used for unknown indication
     Dosage: UNK (SACHET)
  26. KARDEGIC [4]
     Active Substance: ASPIRIN DL-LYSINE
     Dosage: UNK (SACHET)
     Route: 065
  27. KARDEGIC [4]
     Active Substance: ASPIRIN DL-LYSINE
     Dosage: UNK (SACHET)
     Route: 065
  28. KARDEGIC [4]
     Active Substance: ASPIRIN DL-LYSINE
     Dosage: UNK (SACHET)
  29. FERROUS SULFATE [4]
     Active Substance: FERROUS SULFATE
     Indication: Product used for unknown indication
     Dosage: UNK
  30. FERROUS SULFATE [4]
     Active Substance: FERROUS SULFATE
     Dosage: UNK
     Route: 065
  31. FERROUS SULFATE [4]
     Active Substance: FERROUS SULFATE
     Dosage: UNK
     Route: 065
  32. FERROUS SULFATE [4]
     Active Substance: FERROUS SULFATE
     Dosage: UNK
  33. VALPROATE SODIUM [Concomitant]
     Active Substance: VALPROATE SODIUM
     Indication: Product used for unknown indication
     Dosage: 500 MILLIGRAM, TOTAL
     Dates: start: 20250826, end: 20250826
  34. VALPROATE SODIUM [Concomitant]
     Active Substance: VALPROATE SODIUM
     Dosage: 500 MILLIGRAM, TOTAL
     Route: 048
     Dates: start: 20250826, end: 20250826
  35. VALPROATE SODIUM [Concomitant]
     Active Substance: VALPROATE SODIUM
     Dosage: 500 MILLIGRAM, TOTAL
     Route: 048
     Dates: start: 20250826, end: 20250826
  36. VALPROATE SODIUM [Concomitant]
     Active Substance: VALPROATE SODIUM
     Dosage: 500 MILLIGRAM, TOTAL
     Dates: start: 20250826, end: 20250826
  37. LEVOTHYROXINE [Concomitant]
     Active Substance: LEVOTHYROXINE
     Indication: Product used for unknown indication
     Dosage: 75 MICROGRAM, TOTAL (SCORED TABLET)
     Dates: start: 20250826, end: 20250826
  38. LEVOTHYROXINE [Concomitant]
     Active Substance: LEVOTHYROXINE
     Dosage: 75 MICROGRAM, TOTAL (SCORED TABLET)
     Route: 048
     Dates: start: 20250826, end: 20250826
  39. LEVOTHYROXINE [Concomitant]
     Active Substance: LEVOTHYROXINE
     Dosage: 75 MICROGRAM, TOTAL (SCORED TABLET)
     Route: 048
     Dates: start: 20250826, end: 20250826
  40. LEVOTHYROXINE [Concomitant]
     Active Substance: LEVOTHYROXINE
     Dosage: 75 MICROGRAM, TOTAL (SCORED TABLET)
     Dates: start: 20250826, end: 20250826
  41. RIVOTRIL [Concomitant]
     Active Substance: CLONAZEPAM
     Indication: Product used for unknown indication
     Dosage: 2 MILLIGRAM, TOTAL (QUADRI-SCORED TABLET)
     Dates: start: 20250826, end: 20250826
  42. RIVOTRIL [Concomitant]
     Active Substance: CLONAZEPAM
     Dosage: 2 MILLIGRAM, TOTAL (QUADRI-SCORED TABLET)
     Route: 048
     Dates: start: 20250826, end: 20250826
  43. RIVOTRIL [Concomitant]
     Active Substance: CLONAZEPAM
     Dosage: 2 MILLIGRAM, TOTAL (QUADRI-SCORED TABLET)
     Route: 048
     Dates: start: 20250826, end: 20250826
  44. RIVOTRIL [Concomitant]
     Active Substance: CLONAZEPAM
     Dosage: 2 MILLIGRAM, TOTAL (QUADRI-SCORED TABLET)
     Dates: start: 20250826, end: 20250826

REACTIONS (2)
  - Hypotension [Recovered/Resolved]
  - Wrong patient [Recovered/Resolved]

NARRATIVE: CASE EVENT DATE: 20250826
